FAERS Safety Report 24808380 (Version 3)
Quarter: 2025Q1

REPORT INFORMATION
  Report Type: Report from Study
  Country: US (occurrence: US)
  Receive Date: 20250106
  Receipt Date: 20250226
  Transmission Date: 20250408
  Serious: Yes (Hospitalization, Other)
  Sender: ABBVIE
  Company Number: US-ABBVIE-6070433

PATIENT
  Age: 72 Year
  Sex: Male
  Weight: 105 kg

DRUGS (3)
  1. HUMIRA [Suspect]
     Active Substance: ADALIMUMAB
     Indication: Colitis ulcerative
     Dosage: CITRATE FREE, FORM STRENGTH: 40 MG
     Route: 058
     Dates: start: 2019
  2. LUPRON [Concomitant]
     Active Substance: LEUPROLIDE ACETATE
     Indication: Neoplasm malignant
  3. POTASSIUM [Concomitant]
     Active Substance: POTASSIUM
     Indication: Product used for unknown indication

REACTIONS (8)
  - Bladder pain [Unknown]
  - Bone pain [Unknown]
  - Radiation associated pain [Not Recovered/Not Resolved]
  - Radiotherapy [Not Recovered/Not Resolved]
  - Neoplasm malignant [Recovered/Resolved]
  - Pain [Not Recovered/Not Resolved]
  - Penile haemorrhage [Recovered/Resolved]
  - Gait inability [Unknown]

NARRATIVE: CASE EVENT DATE: 20220101
